FAERS Safety Report 9081614 (Version 1)
Quarter: 2013Q1

REPORT INFORMATION
  Report Type: Report from Study
  Country: US (occurrence: US)
  Receive Date: 20130130
  Receipt Date: 20130130
  Transmission Date: 20140127
  Serious: No
  Sender: FDA-Public Use
  Company Number: US-ABBOTT-12P-163-0957567-00

PATIENT
  Age: 62 Year
  Sex: Male

DRUGS (4)
  1. HUMIRA 40 MG/0.8 ML PEN [Suspect]
     Indication: PSORIASIS
     Dosage: LOADING DOSE
     Route: 058
     Dates: start: 20120716, end: 20120716
  2. HUMIRA 40 MG/0.8 ML PEN [Suspect]
     Route: 058
  3. BENICAR [Concomitant]
     Indication: HYPERTENSION
  4. LYRICA [Concomitant]
     Indication: PAIN
     Dosage: DAILY AS NEEDED

REACTIONS (1)
  - Nasal congestion [Not Recovered/Not Resolved]
